FAERS Safety Report 24845816 (Version 1)
Quarter: 2025Q1

REPORT INFORMATION
  Report Type: Report from Study
  Country: US (occurrence: US)
  Receive Date: 20250115
  Receipt Date: 20250115
  Transmission Date: 20250408
  Serious: Yes (Death, Other)
  Sender: GILEAD
  Company Number: US-GILEAD-2025-0699940

PATIENT
  Age: 16 Year
  Sex: Male

DRUGS (9)
  1. AZTREONAM LYSINE [Suspect]
     Active Substance: AZTREONAM LYSINE
     Indication: Chronic respiratory failure
     Dosage: 75MG, INHALE 75 MG VIA NEBULIZER THREE TIMES DAILY FOR 28 DAYS ON, THEN 28 DAYS OFF
     Route: 055
     Dates: start: 20170520, end: 2025
  2. AZTREONAM LYSINE [Suspect]
     Active Substance: AZTREONAM LYSINE
     Indication: Hypoxia
  3. TRILEPTAL [Concomitant]
     Active Substance: OXCARBAZEPINE
  4. TOBRAMYCIN [Concomitant]
     Active Substance: TOBRAMYCIN
  5. LANSOPRAZOLE [Concomitant]
     Active Substance: LANSOPRAZOLE
  6. DIAZEPAM [Concomitant]
     Active Substance: DIAZEPAM
  7. ALBUTEROL SULFATE [Concomitant]
     Active Substance: ALBUTEROL SULFATE
  8. DANTROLENE [Concomitant]
     Active Substance: DANTROLENE
  9. PERFOROMIST [Concomitant]
     Active Substance: FORMOTEROL FUMARATE DIHYDRATE

REACTIONS (2)
  - Death [Fatal]
  - Product use in unapproved indication [Recovered/Resolved]

NARRATIVE: CASE EVENT DATE: 20250109
